FAERS Safety Report 4290564-3 (Version None)
Quarter: 2004Q1

REPORT INFORMATION
  Report Type: 
  Country: None (occurrence: None)
  Receive Date: 20040203
  Receipt Date: 20031215
  Transmission Date: 20041129
  Serious: Yes (Death)
  Sender: FDA-Public Use
  Company Number: KII-1999-0001421

PATIENT
  Sex: Male

DRUGS (6)
  1. OXYCONTIN [Suspect]
     Indication: CANCER PAIN
     Dosage: 20 MG, Q12H, ORAL
     Route: 048
  2. K-DUR 10 [Concomitant]
  3. MILK OF MAGNESIA (MAGNESIUM HYDROXIDE) [Concomitant]
  4. PAXIL [Concomitant]
  5. MULTIVITAMINS (PANTHENOL, NICOTINAMIDE, RIBOFLAVIN, RETINOL, THIAMINE [Concomitant]
  6. PREVALITE (PHENYLALAMINE, COLESTYRAMINE) [Concomitant]

REACTIONS (2)
  - CARDIAC FAILURE CONGESTIVE [None]
  - CEREBROVASCULAR DISORDER [None]
